FAERS Safety Report 8402240-3 (Version None)
Quarter: 2012Q2

REPORT INFORMATION
  Report Type: 
  Country: None (occurrence: None)
  Receive Date: 20120601
  Receipt Date: 20120528
  Transmission Date: 20120825
  Serious: Yes (Other)
  Sender: FDA-Public Use
  Company Number: IT-SANOFI-AVENTIS-2012SA037782

PATIENT
  Sex: Male

DRUGS (2)
  1. ALL OTHER THERAPEUTIC PRODUCTS [Suspect]
     Route: 065
  2. OXALIPLATIN [Suspect]
     Route: 065

REACTIONS (2)
  - CHEST PAIN [None]
  - MYOCARDIAL ISCHAEMIA [None]
